FAERS Safety Report 25928442 (Version 3)
Quarter: 2025Q4

REPORT INFORMATION
  Report Type: Spontaneous
  Country: CN (occurrence: CN)
  Receive Date: 20251016
  Receipt Date: 20251029
  Transmission Date: 20260118
  Serious: Yes (Other)
  Sender: Kenvue
  Company Number: CN-KENVUE-20251005141

PATIENT

DRUGS (1)
  1. WOMENS ROGAINE UNSCENTED [Suspect]
     Active Substance: MINOXIDIL
     Indication: Alopecia
     Dosage: HALF-BOTTLE CAP, ONCE A DAY
     Route: 061
     Dates: start: 20250930, end: 20251001

REACTIONS (4)
  - Eye swelling [Not Recovered/Not Resolved]
  - Off label use [Unknown]
  - Malaise [Recovering/Resolving]
  - Dermatitis contact [Recovering/Resolving]

NARRATIVE: CASE EVENT DATE: 20250930
